FAERS Safety Report 8399916-3 (Version None)
Quarter: 2012Q2

REPORT INFORMATION
  Report Type: 
  Country: None (occurrence: None)
  Receive Date: 20120525
  Receipt Date: 20120509
  Transmission Date: 20120825
  Serious: Yes (Hospitalization, Other)
  Sender: FDA-Public Use
  Company Number: THQ2010A02255

PATIENT
  Age: 35 Year
  Sex: Male

DRUGS (11)
  1. DICLOFENAC SODIUM [Suspect]
     Dosage: 150 MG (50 MG,3 IN 1 D)
  2. RISPERIDONE [Suspect]
     Dosage: 2 MG (2 MG,1 IN 1 D) PER ORAL
     Route: 048
  3. TETRABENAZINE [Suspect]
     Dosage: 12.5 MG (12.5 MG,1 IN 1 D)
  4. RISPERDAL [Suspect]
     Indication: SCHIZOPHRENIA
     Dosage: 50 MG (50 MG,1 IN 2 WK) INTRAMUSCULAR
     Route: 030
     Dates: end: 20100617
  5. COCAINE [Suspect]
  6. ALCOHOL (ETHANOL) [Suspect]
  7. METHADONE HCL [Suspect]
     Dosage: 80 MG (80 MG,1 IN 1 D)
  8. VALDOXAN (AGOMELATIN) [Suspect]
     Dosage: 25 MG (25 MG,1 IN 1 D)
  9. ZOPICLONE [Suspect]
     Dosage: 7.5 MG (7.5 MG,1 IN 1 D)
  10. LANSOPRAZOLE [Suspect]
     Dosage: 60 MG (30 MG,2 IN 1 D)
  11. AMPHETAMINE SULFATE [Suspect]

REACTIONS (2)
  - MULTIPLE DRUG OVERDOSE INTENTIONAL [None]
  - ELECTROCARDIOGRAM ABNORMAL [None]
